FAERS Safety Report 16669176 (Version 1)
Quarter: 2019Q3

REPORT INFORMATION
  Report Type: Spontaneous
  Country: AU (occurrence: AU)
  Receive Date: 20190805
  Receipt Date: 20190805
  Transmission Date: 20191004
  Serious: Yes (Hospitalization)
  Sender: FDA-Public Use
  Company Number: AU-MYLANLABS-2019M1071994

PATIENT
  Age: 30 Year
  Sex: Male

DRUGS (3)
  1. AMISULPRIDE [Suspect]
     Active Substance: AMISULPRIDE
     Indication: PRODUCT USED FOR UNKNOWN INDICATION
     Dosage: UNK
  2. CLOZARIL [Suspect]
     Active Substance: CLOZAPINE
     Indication: SCHIZOPHRENIA
     Dosage: 25 MILLIGRAM
     Route: 048
     Dates: start: 20190730, end: 20190731
  3. ARIPIPRAZOLE. [Suspect]
     Active Substance: ARIPIPRAZOLE
     Indication: PRODUCT USED FOR UNKNOWN INDICATION
     Dosage: UNK

REACTIONS (3)
  - Somnolence [Unknown]
  - Drug titration error [Unknown]
  - Anxiety [Unknown]

NARRATIVE: CASE EVENT DATE: 2019
